FAERS Safety Report 9169216 (Version 1)
Quarter: 2013Q1

REPORT INFORMATION
  Report Type: Spontaneous
  Country: FR (occurrence: FR)
  Receive Date: 20130318
  Receipt Date: 20130318
  Transmission Date: 20140127
  Serious: Yes (Hospitalization)
  Sender: FDA-Public Use
  Company Number: FR-PFIZER INC-2013084107

PATIENT
  Age: 91 Year
  Sex: Female

DRUGS (16)
  1. LYRICA [Suspect]
     Dosage: 100 MG, DAILY
     Route: 048
     Dates: start: 20130107, end: 20130110
  2. LORAZEPAM [Suspect]
     Dosage: UNK
     Route: 048
     Dates: start: 20130107, end: 20130110
  3. DITROPAN [Suspect]
     Dosage: 7.5 MG, DAILY
     Route: 048
     Dates: start: 20130107, end: 20130110
  4. KARDEGIC [Suspect]
     Dosage: UNK
     Route: 048
     Dates: start: 20130107, end: 20130110
  5. LOSARTAN [Concomitant]
     Dosage: 1 DF, 1X/DAY
  6. FUROSEMIDE [Concomitant]
     Dosage: 1 DF, 1X/DAY
  7. BISOPROLOL [Concomitant]
     Dosage: 1 DF, 1X/DAY
  8. NICORANDIL [Concomitant]
     Dosage: 1 DF, 1X/DAY
  9. DIFFU K [Concomitant]
     Dosage: 1 DF, 1X/DAY
  10. DISCOTRINE [Concomitant]
     Dosage: 1 DF, 1X/DAY
  11. OMEPRAZOLE [Concomitant]
     Dosage: 1 DF, 1X/DAY
  12. GAVISCON [Concomitant]
     Dosage: 3 DF, DAILY
  13. DAFALGAN [Concomitant]
     Dosage: UNK
  14. OXYBUTYNIN [Concomitant]
     Dosage: 0.5 DF, 3X/DAY
  15. VOLTARENE [Concomitant]
     Dosage: UNK
  16. PIROXICAM [Concomitant]
     Dosage: 1 DF, 1X/DAY

REACTIONS (3)
  - Faecaloma [Recovered/Resolved]
  - Renal failure [Recovered/Resolved]
  - Dehydration [Recovered/Resolved]
